FAERS Safety Report 17003409 (Version 1)
Quarter: 2019Q4

REPORT INFORMATION
  Report Type: Spontaneous
  Country: US (occurrence: US)
  Receive Date: 20191107
  Receipt Date: 20191107
  Transmission Date: 20200122
  Serious: No
  Sender: FDA-Public Use
  Company Number: US-ALKEM LABORATORIES LIMITED-US-ALKEM-2019-06790

PATIENT

DRUGS (2)
  1. QUIZARTINIB [Suspect]
     Active Substance: QUIZARTINIB
     Indication: PRODUCT USED FOR UNKNOWN INDICATION
     Dosage: 30 MILLIGRAM
     Route: 065
  2. LANSOPRAZOLE. [Suspect]
     Active Substance: LANSOPRAZOLE
     Indication: PRODUCT USED FOR UNKNOWN INDICATION
     Dosage: 60 MILLIGRAM, QD DAYS 1-5
     Route: 065

REACTIONS (13)
  - Vessel puncture site pain [Unknown]
  - Hypoacusis [Unknown]
  - Nausea [Unknown]
  - Upper respiratory tract infection [Unknown]
  - Drug interaction [Unknown]
  - Dysmenorrhoea [Unknown]
  - Back pain [Unknown]
  - Dizziness [Unknown]
  - Hypoaesthesia [Unknown]
  - Phlebotomy [Unknown]
  - Constipation [Unknown]
  - Dermatitis [Unknown]
  - Fatigue [Unknown]
